FAERS Safety Report 20891430 (Version 2)
Quarter: 2022Q2

REPORT INFORMATION
  Report Type: Report from Study
  Country: US (occurrence: US)
  Receive Date: 20220530
  Receipt Date: 20220623
  Transmission Date: 20220720
  Serious: Yes (Hospitalization, Other)
  Sender: FDA-Public Use
  Company Number: US-BIOVITRUM-2022US04709

PATIENT
  Age: 22 Year
  Sex: Female

DRUGS (2)
  1. KINERET [Suspect]
     Active Substance: ANAKINRA
     Indication: Epilepsy
     Route: 058
     Dates: start: 20220317
  2. KINERET [Suspect]
     Active Substance: ANAKINRA
     Route: 058
     Dates: start: 20220317

REACTIONS (7)
  - Seizure [Unknown]
  - Neutropenia [Unknown]
  - Injection site mass [Unknown]
  - Injection site inflammation [Unknown]
  - Injection site erythema [Unknown]
  - Off label use [Not Recovered/Not Resolved]
  - Product use issue [Unknown]

NARRATIVE: CASE EVENT DATE: 20220317
